FAERS Safety Report 8038953-5 (Version None)
Quarter: 2012Q1

REPORT INFORMATION
  Report Type: 
  Country: None (occurrence: None)
  Receive Date: 20120111
  Receipt Date: 20111208
  Transmission Date: 20120608
  Serious: No
  Sender: FDA-Public Use
  Company Number: US-AMGEN-USASP2011065280

PATIENT
  Age: 73 Year
  Sex: Male

DRUGS (1)
  1. ENBREL [Suspect]
     Indication: PSORIASIS
     Dosage: 50 MG, 2 TIMES/WK
     Dates: start: 20100701

REACTIONS (6)
  - PAIN IN EXTREMITY [None]
  - ARTHRITIS [None]
  - OEDEMA PERIPHERAL [None]
  - INCORRECT DOSE ADMINISTERED [None]
  - INJURY ASSOCIATED WITH DEVICE [None]
  - WRONG TECHNIQUE IN DRUG USAGE PROCESS [None]
